FAERS Safety Report 6233304-0 (Version None)
Quarter: 2009Q2

REPORT INFORMATION
  Report Type: 
  Country: None (occurrence: None)
  Receive Date: 20090615
  Receipt Date: 20090615
  Transmission Date: 20091009
  Serious: Yes (Hospitalization)
  Sender: FDA-Public Use
  Company Number: None

PATIENT
  Age: 89 Year
  Sex: Male

DRUGS (4)
  1. ATENOLOL [Suspect]
     Indication: CORONARY ARTERY DISEASE
     Dosage: 12.5 MG EVERY DAY PO
     Route: 048
     Dates: start: 20090326, end: 20090611
  2. ATENOLOL [Suspect]
     Indication: HYPERTENSION
     Dosage: 12.5 MG EVERY DAY PO
     Route: 048
     Dates: start: 20090326, end: 20090611
  3. DILTIAZEM [Suspect]
     Indication: CORONARY ARTERY DISEASE
     Dosage: 420 MG EVERY DAY PO
     Route: 048
     Dates: start: 20090311, end: 20090611
  4. DILTIAZEM [Suspect]
     Indication: HYPERTENSION
     Dosage: 420 MG EVERY DAY PO
     Route: 048
     Dates: start: 20090311, end: 20090611

REACTIONS (6)
  - BLOOD CREATININE INCREASED [None]
  - BLOOD UREA INCREASED [None]
  - BRADYCARDIA [None]
  - DIZZINESS [None]
  - FEELING ABNORMAL [None]
  - HYPERHIDROSIS [None]
